FAERS Safety Report 20626509 (Version 2)
Quarter: 2022Q2

REPORT INFORMATION
  Report Type: Report from Study
  Country: AU (occurrence: AU)
  Receive Date: 20220323
  Receipt Date: 20220407
  Transmission Date: 20220720
  Serious: Yes (Hospitalization, Other)
  Sender: FDA-Public Use
  Company Number: AU-SUN PHARMACEUTICAL INDUSTRIES LTD-2022RR-328533

PATIENT
  Age: 65 Year
  Sex: Male
  Weight: 88 kg

DRUGS (12)
  1. TILDRAKIZUMAB [Suspect]
     Active Substance: TILDRAKIZUMAB
     Indication: Pityriasis rubra pilaris
     Dosage: 200 MILLIGRAM ON WEEKS 0 AND 4
     Route: 065
     Dates: start: 2019
  2. CYCLOSPORINE [Suspect]
     Active Substance: CYCLOSPORINE
     Indication: Pityriasis rubra pilaris
     Dosage: 100 MILLIGRAM, BID
     Route: 065
  3. METHOTREXATE [Suspect]
     Active Substance: METHOTREXATE
     Indication: Pityriasis rubra pilaris
     Dosage: 10 MILLIGRAM, WEEKLY
     Route: 065
     Dates: start: 2018
  4. METHOTREXATE [Suspect]
     Active Substance: METHOTREXATE
     Dosage: 20 MILLIGRAM, WEEKLY
     Route: 065
     Dates: start: 2018
  5. METHOTREXATE [Suspect]
     Active Substance: METHOTREXATE
     Dosage: 10 MILLIGRAM, WEEKLY
     Route: 065
     Dates: start: 2018, end: 2019
  6. METHOTREXATE [Suspect]
     Active Substance: METHOTREXATE
     Dosage: 20 MILLIGRAM, WEEKLY
     Route: 065
     Dates: start: 2019
  7. BETAMETHASONE [Suspect]
     Active Substance: BETAMETHASONE
     Indication: Pityriasis rubra pilaris
     Dosage: 0.05 PERCENT, OINT, UNK
     Route: 061
  8. ACITRETIN [Suspect]
     Active Substance: ACITRETIN
     Indication: Pityriasis rubra pilaris
     Dosage: 25 MILLIGRAM, DAILY
     Route: 065
     Dates: start: 2018
  9. ACITRETIN [Suspect]
     Active Substance: ACITRETIN
     Dosage: 35 MILLIGRAM, DAILY
     Route: 065
     Dates: start: 2018
  10. ACITRETIN [Suspect]
     Active Substance: ACITRETIN
     Dosage: 10 MILLIGRAM, DAILY
     Route: 065
     Dates: start: 2018, end: 2019
  11. GLYCERIN [Concomitant]
     Active Substance: GLYCERIN
     Indication: Pityriasis rubra pilaris
     Dosage: 10 PERCENT, UNK
     Route: 061
  12. SECUKINUMAB [Concomitant]
     Active Substance: SECUKINUMAB
     Indication: Pityriasis rubra pilaris
     Dosage: 300 MILLIGRAM, MONTHLY
     Route: 065
     Dates: start: 2018, end: 2019

REACTIONS (3)
  - Therapeutic product effect incomplete [Unknown]
  - Drug ineffective for unapproved indication [Unknown]
  - Off label use [Unknown]
